FAERS Safety Report 10363617 (Version 1)
Quarter: 2014Q3

REPORT INFORMATION
  Report Type: Spontaneous
  Country: PT (occurrence: None)
  Receive Date: 20140731
  Receipt Date: 20140731
  Transmission Date: 20150326
  Serious: Yes (Death, Life-Threatening, Hospitalization)
  Sender: FDA-Public Use
  Company Number: FK201402892

PATIENT
  Age: 68 Year
  Sex: Male
  Weight: 75 kg

DRUGS (8)
  1. BUPRENORFINA [Concomitant]
  2. OXALIPLATIN. [Suspect]
     Active Substance: OXALIPLATIN
     Indication: RECTAL CANCER
     Route: 042
     Dates: start: 20140122, end: 20140319
  3. FLUOROURACILO ACCORD (FLUOROURACIL) [Concomitant]
  4. ADT (AMITRIPTYLINE HYDROCHLORIDE) [Concomitant]
  5. PREDNISOLONA (PREDNISOLONE) [Concomitant]
     Indication: RECTAL CANCER
  6. FOLINATO DE CALCIO TEVA (CALCIUM FOLINATE) [Concomitant]
  7. PREGABALINA [Concomitant]
     Active Substance: PREGABALIN
  8. OMEPRAZOL (OMEPRAZOLE) [Concomitant]

REACTIONS (2)
  - Acute respiratory distress syndrome [None]
  - Pneumonitis [None]

NARRATIVE: CASE EVENT DATE: 20140616
